FAERS Safety Report 8805589 (Version 2)
Quarter: 2012Q4

REPORT INFORMATION
  Report Type: 
  Country: US (occurrence: US)
  Receive Date: 20120924
  Receipt Date: 20121011
  Transmission Date: 20130627
  Serious: No
  Sender: FDA-Public Use
  Company Number: US-009507513-1208USA011507

PATIENT
  Sex: Male
  Weight: 72.56 kg

DRUGS (8)
  1. PEGINTRON [Suspect]
     Indication: HEPATITIS C
     Dosage: UNK
     Dates: start: 20120224
  2. REBETOL [Suspect]
     Indication: HEPATITIS C
     Dosage: 1200 mg, qd
     Route: 048
     Dates: start: 20120224
  3. REBETOL [Suspect]
     Dosage: 600 mg, qd
     Route: 048
     Dates: start: 2012
  4. VICTRELIS [Suspect]
     Indication: HEPATITIS C
     Dosage: UNK
     Route: 048
     Dates: start: 20120323
  5. INSULIN [Concomitant]
     Indication: DIABETES MELLITUS
  6. METFORMIN [Concomitant]
     Indication: DIABETES MELLITUS
  7. LISINOPRIL [Concomitant]
     Indication: HYPERTENSION
  8. AMBIEN [Concomitant]
     Indication: INSOMNIA

REACTIONS (24)
  - Adverse event [Unknown]
  - Anaemia [Unknown]
  - Anaemia [Unknown]
  - Food intolerance [Unknown]
  - Libido decreased [Unknown]
  - Red blood cell count decreased [Unknown]
  - Dysgeusia [Unknown]
  - Sleep disorder [Unknown]
  - Constipation [Unknown]
  - Agitation [Unknown]
  - Weight decreased [Unknown]
  - Weight decreased [Unknown]
  - Sleep disorder [Unknown]
  - Nervousness [Unknown]
  - Decreased appetite [Unknown]
  - Malaise [Unknown]
  - Decreased appetite [Unknown]
  - Irritability [Unknown]
  - Irritability [Unknown]
  - Depression [Unknown]
  - Malaise [Unknown]
  - Cough [Unknown]
  - Decreased appetite [Unknown]
  - Therapeutic response decreased [Unknown]
